FAERS Safety Report 6255840-3 (Version None)
Quarter: 2009Q3

REPORT INFORMATION
  Report Type: 
  Country: None (occurrence: None)
  Receive Date: 20090703
  Receipt Date: 20090623
  Transmission Date: 20100115
  Serious: Yes (Hospitalization, Other)
  Sender: FDA-Public Use
  Company Number: US-BAXTER-2009BH008668

PATIENT
  Age: 52 Year
  Sex: Male
  Weight: 62 kg

DRUGS (18)
  1. KIOVIG [Suspect]
     Indication: APLASIA PURE RED CELL
     Route: 042
     Dates: start: 20090313, end: 20090315
  2. OLANZAPINE [Suspect]
     Indication: DRUG USE FOR UNKNOWN INDICATION
     Route: 048
  3. COREG [Suspect]
     Indication: DRUG USE FOR UNKNOWN INDICATION
     Route: 048
  4. PRILOSEC [Suspect]
     Indication: DRUG USE FOR UNKNOWN INDICATION
     Route: 048
  5. PLAVIX [Suspect]
     Indication: DRUG USE FOR UNKNOWN INDICATION
     Route: 048
  6. ACETYLSALICYLIC ACID [Suspect]
     Indication: DRUG USE FOR UNKNOWN INDICATION
     Route: 048
  7. DEPAKOTE [Suspect]
     Indication: DRUG USE FOR UNKNOWN INDICATION
     Route: 048
  8. CRIXIVAN [Suspect]
     Indication: DRUG USE FOR UNKNOWN INDICATION
     Route: 048
  9. NORVIR [Suspect]
     Indication: DRUG USE FOR UNKNOWN INDICATION
     Route: 048
  10. LISINOPRIL [Suspect]
     Indication: DRUG USE FOR UNKNOWN INDICATION
     Route: 048
  11. ATORVASTATIN CALCIUM [Suspect]
     Indication: DRUG USE FOR UNKNOWN INDICATION
     Route: 048
  12. EPIVIR [Concomitant]
     Route: 048
  13. FOLIC ACID [Concomitant]
     Route: 048
  14. RETROVIR [Concomitant]
     Route: 048
  15. IMDUR [Concomitant]
     Route: 048
  16. ASCORBIC ACID [Concomitant]
     Route: 048
  17. COLACE [Concomitant]
     Route: 048
  18. NICODERM [Concomitant]

REACTIONS (5)
  - ANAEMIA [None]
  - ANTIBODY TEST POSITIVE [None]
  - HAEMOGLOBINURIA [None]
  - HAEMOLYSIS [None]
  - RENAL FAILURE [None]
